FAERS Safety Report 6840187-4 (Version None)
Quarter: 2010Q3

REPORT INFORMATION
  Report Type: 
  Country: None (occurrence: None)
  Receive Date: 20100713
  Receipt Date: 20100713
  Transmission Date: 20110219
  Serious: No
  Sender: FDA-Public Use
  Company Number: None

PATIENT
  Sex: Female
  Weight: 77.1115 kg

DRUGS (1)
  1. BONIVA [Suspect]
     Indication: OSTEOPOROSIS
     Dosage: 1 PILL ONCE A MONTH
     Dates: start: 20060801, end: 20080801

REACTIONS (4)
  - DISCOMFORT [None]
  - ECONOMIC PROBLEM [None]
  - IMPAIRED HEALING [None]
  - TOOTH LOSS [None]
